FAERS Safety Report 5382798-1 (Version None)
Quarter: 2007Q3

REPORT INFORMATION
  Report Type: 
  Country: None (occurrence: None)
  Receive Date: 20070705
  Receipt Date: 20070627
  Transmission Date: 20080115
  Serious: Yes (Death)
  Sender: FDA-Public Use
  Company Number: 20073878

PATIENT
  Age: 58 Year
  Sex: Male

DRUGS (2)
  1. LIORESAL [Suspect]
     Indication: MUSCLE SPASTICITY
     Dosage: 920 MCG, DAILY, INTRATHECAL
     Route: 037
  2. HYDROMORPHONE 20 MG/ML [Concomitant]

REACTIONS (1)
  - CANCER PAIN [None]
